FAERS Safety Report 14517624 (Version 12)
Quarter: 2018Q3

REPORT INFORMATION
  Report Type: Spontaneous
  Country: US (occurrence: US)
  Receive Date: 20180212
  Receipt Date: 20180711
  Transmission Date: 20181010
  Serious: Yes (Other)
  Sender: FDA-Public Use
  Company Number: US-PFIZER INC-2018004224

PATIENT
  Age: 78 Year
  Sex: Female
  Weight: 56.69 kg

DRUGS (12)
  1. SUTENT [Suspect]
     Active Substance: SUNITINIB MALATE
     Indication: METASTASES TO LUNG
  2. ZOFRAN [Concomitant]
     Active Substance: ONDANSETRON HYDROCHLORIDE
     Dosage: UNK
  3. AMLODIPINE [Concomitant]
     Active Substance: AMLODIPINE BESYLATE
     Dosage: UNK
  4. SUTENT [Suspect]
     Active Substance: SUNITINIB MALATE
     Indication: GASTROINTESTINAL STROMAL TUMOUR
     Dosage: 50 MG, CYCLIC (28 DAYS ON/14 DAYS OFF)
     Dates: start: 20180121, end: 20180319
  5. SUTENT [Suspect]
     Active Substance: SUNITINIB MALATE
     Indication: RENAL CANCER STAGE IV
     Dosage: 37.5MG, CYCLIC (28DAYS ON/14 DAYS OFF))
     Dates: start: 20180416
  6. LASIX [Concomitant]
     Active Substance: FUROSEMIDE
     Indication: SWELLING
     Dosage: UNK, AS NEEDED
  7. DIPHENOXYLATE [Concomitant]
     Active Substance: DIPHENOXYLATE
     Dosage: UNK
  8. POTASSIUM CHLORIDE. [Concomitant]
     Active Substance: POTASSIUM CHLORIDE
     Dosage: UNK
  9. SUTENT [Suspect]
     Active Substance: SUNITINIB MALATE
     Indication: METASTASES TO BONE
  10. ATIVAN [Concomitant]
     Active Substance: LORAZEPAM
     Dosage: UNK
  11. METOPROLOL. [Concomitant]
     Active Substance: METOPROLOL
     Dosage: UNK
  12. DICYCLOMINE [Concomitant]
     Active Substance: DICYCLOMINE HYDROCHLORIDE
     Dosage: UNK

REACTIONS (38)
  - Weight increased [Unknown]
  - Dysgeusia [Unknown]
  - Blood pressure increased [Recovered/Resolved]
  - Pneumonia [Recovered/Resolved]
  - Weight decreased [Unknown]
  - Dry skin [Unknown]
  - Viral infection [Recovering/Resolving]
  - Decreased appetite [Recovered/Resolved]
  - Dysphagia [Unknown]
  - Pulmonary congestion [Not Recovered/Not Resolved]
  - Fatigue [Unknown]
  - Pruritus [Unknown]
  - Nausea [Recovering/Resolving]
  - Dysphonia [Recovering/Resolving]
  - Contusion [Recovered/Resolved]
  - Feeling cold [Unknown]
  - Hyperhidrosis [Unknown]
  - Nasopharyngitis [Unknown]
  - Eating disorder [Not Recovered/Not Resolved]
  - Cough [Recovered/Resolved]
  - Diarrhoea [Recovering/Resolving]
  - Vomiting [Recovering/Resolving]
  - Tooth disorder [Unknown]
  - Headache [Not Recovered/Not Resolved]
  - Stomatitis [Recovering/Resolving]
  - Skin exfoliation [Unknown]
  - Dehydration [Unknown]
  - Dyspepsia [Unknown]
  - Bronchitis [Unknown]
  - Dizziness [Unknown]
  - Limb discomfort [Recovered/Resolved]
  - Influenza [Recovering/Resolving]
  - Malaise [Unknown]
  - White blood cell count increased [Unknown]
  - Oral pain [Recovering/Resolving]
  - Rash [Unknown]
  - Impaired healing [Unknown]
  - Hypothyroidism [Unknown]

NARRATIVE: CASE EVENT DATE: 2018
